FAERS Safety Report 7417423 (Version 24)
Quarter: 2014Q2

REPORT INFORMATION
  Report Type: Spontaneous
  Country: US (occurrence: US)
  Receive Date: 20100611
  Receipt Date: 20140609
  Transmission Date: 20141212
  Serious: Yes (Other)
  Sender: FDA-Public Use
  Company Number: PHEH2010US03465

PATIENT
  Sex: Male

DRUGS (9)
  1. ZOMETA [Suspect]
     Dosage: 4 MG, QMO
     Route: 042
  2. AREDIA [Suspect]
     Route: 042
  3. THALIDOMIDE [Suspect]
     Dosage: 50 MG, QD
     Dates: start: 200208, end: 200701
  4. VINCRISTINE [Suspect]
  5. CLONAZEPAM [Concomitant]
     Dosage: 0.5 MG
  6. DEXAMETHASONE [Concomitant]
  7. TEGRETOL [Concomitant]
     Dosage: 200 MG, BID
  8. NEURONTIN [Concomitant]
     Dosage: 300 MG, TID
  9. OXYCONTIN [Concomitant]

REACTIONS (96)
  - Osteonecrosis of jaw [Unknown]
  - Pain [Unknown]
  - Infection [Unknown]
  - Deformity [Unknown]
  - Injury [Unknown]
  - Overdose [Unknown]
  - Neuropathy peripheral [Unknown]
  - Otitis externa [Unknown]
  - Oral cavity fistula [Unknown]
  - Anaemia [Unknown]
  - Hypoaesthesia oral [Unknown]
  - Osteomyelitis [Unknown]
  - Osteonecrosis [Unknown]
  - Osteosclerosis [Unknown]
  - Osteoporosis [Unknown]
  - Gingival bleeding [Unknown]
  - Mental disorder [Unknown]
  - Tinnitus [Unknown]
  - Nasal septum deviation [Unknown]
  - Pneumonia [Unknown]
  - Hepatitis acute [Unknown]
  - Erectile dysfunction [Unknown]
  - Neurotoxicity [Unknown]
  - Rhinitis allergic [Unknown]
  - Gastrooesophageal reflux disease [Unknown]
  - Febrile neutropenia [Unknown]
  - Spondylolisthesis [Unknown]
  - Depression [Unknown]
  - Femur fracture [Unknown]
  - Cellulitis [Unknown]
  - Pain in jaw [Unknown]
  - Amnesia [Unknown]
  - Periodontitis [Unknown]
  - Spondylolysis [Unknown]
  - Intervertebral disc protrusion [Unknown]
  - Abscess jaw [Unknown]
  - Encephalopathy [Unknown]
  - Carpal tunnel syndrome [Unknown]
  - Cognitive disorder [Unknown]
  - Radiculopathy [Unknown]
  - Anxiety [Unknown]
  - Peripheral swelling [Not Recovered/Not Resolved]
  - Erythema [Not Recovered/Not Resolved]
  - Dyspnoea [Unknown]
  - Heart rate increased [Unknown]
  - Pain in extremity [Unknown]
  - Musculoskeletal pain [Unknown]
  - Toothache [Unknown]
  - Restless legs syndrome [Unknown]
  - Paraproteinaemia [Unknown]
  - Monoclonal gammopathy [Unknown]
  - Conjunctivitis [Unknown]
  - Hepatic failure [Unknown]
  - Gingival swelling [Unknown]
  - Pharyngeal ulceration [Unknown]
  - Jaw disorder [Unknown]
  - Myopathy [Unknown]
  - Trigeminal neuralgia [Unknown]
  - Somnolence [Unknown]
  - Back pain [Unknown]
  - Foot fracture [Unknown]
  - Gallbladder disorder [Unknown]
  - Ascites [Unknown]
  - Coagulopathy [Unknown]
  - Swelling face [Unknown]
  - Vomiting [Unknown]
  - Rash [Unknown]
  - Bone deformity [Unknown]
  - Loose tooth [Unknown]
  - Arthralgia [Unknown]
  - Lymphadenopathy [Unknown]
  - Left ventricular hypertrophy [Unknown]
  - Groin pain [Unknown]
  - Nausea [Unknown]
  - Fatigue [Unknown]
  - Headache [Unknown]
  - Gait disturbance [Unknown]
  - Burning sensation [Unknown]
  - Pulmonary fibrosis [Unknown]
  - Osteoarthritis [Unknown]
  - Osteolysis [Unknown]
  - Sinus disorder [Unknown]
  - Cardiac disorder [Unknown]
  - Venoocclusive liver disease [Unknown]
  - Hepatic lesion [Unknown]
  - Haemangioma of liver [Unknown]
  - Joint dislocation [Unknown]
  - Intervertebral disc degeneration [Unknown]
  - Spinal osteoarthritis [Unknown]
  - Plasma cell myeloma [Unknown]
  - Rash macular [Unknown]
  - Gingivitis [Unknown]
  - Dyspepsia [Unknown]
  - Musculoskeletal chest pain [Unknown]
  - Cough [Unknown]
  - Paraesthesia [Unknown]
